FAERS Safety Report 17967914 (Version 3)
Quarter: 2020Q3

REPORT INFORMATION
  Report Type: Spontaneous
  Country: CH (occurrence: CH)
  Receive Date: 20200701
  Receipt Date: 20200803
  Transmission Date: 20201103
  Serious: Yes (Death, Hospitalization, Other)
  Sender: FDA-Public Use
  Company Number: CH-ABBVIE-20K-151-3466073-00

PATIENT
  Age: 79 Year
  Sex: Male

DRUGS (1)
  1. VENCLYXTO [Suspect]
     Active Substance: VENETOCLAX
     Indication: MANTLE CELL LYMPHOMA
     Route: 048
     Dates: start: 20200617, end: 2020

REACTIONS (5)
  - General physical health deterioration [Fatal]
  - Tumour lysis syndrome [Unknown]
  - Off label use [Unknown]
  - Mantle cell lymphoma [Fatal]
  - Neoplasm progression [Fatal]

NARRATIVE: CASE EVENT DATE: 2020
